FAERS Safety Report 6896302-X (Version None)
Quarter: 2010Q3

REPORT INFORMATION
  Report Type: 
  Country: None (occurrence: None)
  Receive Date: 20100802
  Receipt Date: 20100726
  Transmission Date: 20110219
  Serious: Yes (Hospitalization)
  Sender: FDA-Public Use
  Company Number: B0668014A

PATIENT
  Sex: Male

DRUGS (1)
  1. AUGMENTIN '125' [Suspect]
     Dosage: 1G PER DAY
     Route: 048
     Dates: start: 20100617, end: 20100617

REACTIONS (2)
  - RASH [None]
  - SYNCOPE [None]
